FAERS Safety Report 5708656-8 (Version None)
Quarter: 2008Q2

REPORT INFORMATION
  Report Type: 
  Country: None (occurrence: None)
  Receive Date: 20080417
  Receipt Date: 20080325
  Transmission Date: 20081010
  Serious: Yes (Hospitalization)
  Sender: FDA-Public Use
  Company Number: FR-ASTRAZENECA-2008CG00460

PATIENT
  Age: 24587 Day
  Sex: Female

DRUGS (4)
  1. CARBOCAINE [Suspect]
     Indication: LOCAL ANAESTHESIA
     Route: 053
     Dates: start: 20080115, end: 20080115
  2. TOPALGIC LP [Suspect]
     Route: 048
     Dates: start: 20080115, end: 20080115
  3. ACUPAN [Suspect]
     Route: 048
     Dates: start: 20080115, end: 20080115
  4. DI ANTALVIC [Suspect]
     Route: 048
     Dates: start: 20080115, end: 20080115

REACTIONS (3)
  - AGITATION [None]
  - CONFUSIONAL STATE [None]
  - DELIRIUM [None]
